FAERS Safety Report 4686910-9 (Version None)
Quarter: 2005Q2

REPORT INFORMATION
  Report Type: 
  Country: None (occurrence: None)
  Receive Date: 20050609
  Receipt Date: 20050310
  Transmission Date: 20051028
  Serious: Yes (Hospitalization, Disabling)
  Sender: FDA-Public Use
  Company Number: US-MERCK-0503USA02213

PATIENT
  Age: 63 Year
  Sex: Male
  Weight: 95 kg

DRUGS (2)
  1. VIOXX [Suspect]
     Indication: OSTEOARTHRITIS
     Route: 048
     Dates: start: 20011127, end: 20040201
  2. TENEX [Concomitant]
     Route: 065
     Dates: start: 19980101

REACTIONS (23)
  - ARTHROPATHY [None]
  - BALANCE DISORDER [None]
  - BENIGN NEOPLASM OF THYROID GLAND [None]
  - BREAST MASS [None]
  - BREAST PAIN [None]
  - CEREBROVASCULAR ACCIDENT [None]
  - COORDINATION ABNORMAL [None]
  - DEAFNESS [None]
  - DEAFNESS NEUROSENSORY [None]
  - DEEP VEIN THROMBOSIS [None]
  - DIVERTICULUM [None]
  - DIZZINESS [None]
  - EMOTIONAL DISTRESS [None]
  - GOITRE [None]
  - GYNAECOMASTIA [None]
  - OEDEMA PERIPHERAL [None]
  - POST THROMBOTIC SYNDROME [None]
  - SALIVARY GLAND ADENOMA [None]
  - THROMBOSIS [None]
  - THYROID DISORDER [None]
  - THYROID NEOPLASM [None]
  - TRANSIENT ISCHAEMIC ATTACK [None]
  - VERTIGO [None]
